FAERS Safety Report 14611367 (Version 1)
Quarter: 2018Q1

REPORT INFORMATION
  Report Type: Report from Study
  Country: None (occurrence: IT)
  Receive Date: 20180308
  Receipt Date: 20180308
  Transmission Date: 20180509
  Serious: Yes (Hospitalization)
  Sender: FDA-Public Use
  Company Number: IT-ABBVIE-18K-083-2277734-00

PATIENT
  Age: 81 Year
  Sex: Male

DRUGS (1)
  1. DUODOPA [Suspect]
     Active Substance: CARBIDOPA\LEVODOPA
     Indication: PARKINSON^S DISEASE
     Dosage: MD 1,5+3?CR 2,1?ED 1,5
     Route: 050
     Dates: start: 20110401

REACTIONS (2)
  - Vertebral lesion [Unknown]
  - Fall [Unknown]

NARRATIVE: CASE EVENT DATE: 201708
